FAERS Safety Report 25099942 (Version 2)
Quarter: 2025Q2

REPORT INFORMATION
  Report Type: Spontaneous
  Country: FR (occurrence: FR)
  Receive Date: 20250320
  Receipt Date: 20250410
  Transmission Date: 20250717
  Serious: Yes (Other)
  Sender: ALEXION PHARMACEUTICALS
  Company Number: FR-ASTRAZENECA-202503GLO015501FR

PATIENT
  Age: 52 Year

DRUGS (2)
  1. QUETIAPINE FUMARATE [Suspect]
     Active Substance: QUETIAPINE FUMARATE
     Indication: Bipolar disorder
  2. QUETIAPINE FUMARATE [4]
     Active Substance: QUETIAPINE FUMARATE

REACTIONS (5)
  - Palpitations [Recovered/Resolved]
  - Somnolence [Recovered/Resolved]
  - Wrong product administered [Recovered/Resolved]
  - Incorrect dose administered [Recovered/Resolved]
  - Accidental overdose [Recovered/Resolved]
